FAERS Safety Report 6808406-8 (Version None)
Quarter: 2010Q2

REPORT INFORMATION
  Report Type: 
  Country: None (occurrence: None)
  Receive Date: 20100629
  Receipt Date: 20090810
  Transmission Date: 20101027
  Serious: No
  Sender: FDA-Public Use
  Company Number: US-PFIZER INC-2009212903

PATIENT
  Sex: Male
  Weight: 77 kg

DRUGS (4)
  1. TIKOSYN [Suspect]
     Indication: ATRIAL FIBRILLATION
     Dosage: 375 UG, 1X/DAY
     Dates: start: 20090311
  2. WARFARIN [Concomitant]
     Indication: ATRIAL FIBRILLATION
     Dosage: UNK
  3. COZAAR [Concomitant]
     Dosage: UNK
  4. ZETIA [Concomitant]
     Dosage: UNK

REACTIONS (4)
  - ARTHRALGIA [None]
  - FLUID RETENTION [None]
  - LIMB DISCOMFORT [None]
  - PAIN IN EXTREMITY [None]
